FAERS Safety Report 7988272-8 (Version None)
Quarter: 2011Q4

REPORT INFORMATION
  Report Type: 
  Country: None (occurrence: None)
  Receive Date: 20111216
  Receipt Date: 20110919
  Transmission Date: 20120403
  Serious: No
  Sender: FDA-Public Use
  Company Number: US-ABBOTT-11P-163-0856735-00

PATIENT
  Age: 51 Year
  Sex: Female
  Weight: 44.038 kg

DRUGS (3)
  1. PROMETRIUM [Suspect]
     Indication: OOPHORECTOMY
     Dates: start: 20110812
  2. PROMETRIUM [Suspect]
     Dates: start: 20110801
  3. VIVELLE-DOT [Concomitant]
     Indication: PRODUCT USED FOR UNKNOWN INDICATION

REACTIONS (5)
  - DRUG INEFFECTIVE [None]
  - MIGRAINE [None]
  - INSOMNIA [None]
  - VAGINAL HAEMORRHAGE [None]
  - CAPSULE PHYSICAL ISSUE [None]
